FAERS Safety Report 5332647-2 (Version None)
Quarter: 2007Q2

REPORT INFORMATION
  Report Type: 
  Country: None (occurrence: None)
  Receive Date: 20070523
  Receipt Date: 20070511
  Transmission Date: 20071010
  Serious: Yes (Disabling)
  Sender: FDA-Public Use
  Company Number: DK-PFIZER INC-2007039503

PATIENT
  Sex: Male
  Weight: 80 kg

DRUGS (2)
  1. DEPO-MEDROL [Suspect]
     Indication: INFLAMMATION
     Route: 030
     Dates: start: 20070410, end: 20070417
  2. IBUMETIN [Concomitant]
     Route: 048

REACTIONS (1)
  - MUSCLE SPASMS [None]
